FAERS Safety Report 4403554-4 (Version None)
Quarter: 2004Q3

REPORT INFORMATION
  Report Type: 
  Country: None (occurrence: None)
  Receive Date: 20040719
  Receipt Date: 20040707
  Transmission Date: 20050211
  Serious: Yes (Hospitalization)
  Sender: FDA-Public Use
  Company Number: 163-20785-04020584

PATIENT
  Age: 71 Year
  Sex: Male

DRUGS (11)
  1. THALOMID [Suspect]
     Indication: MULTIPLE MYELOMA
     Dosage: 100 MG, QD, ORAL
     Route: 048
     Dates: start: 20031001
  2. DECADRON [Suspect]
     Indication: MULTIPLE MYELOMA
  3. PROCRIT (ERYTHROPOIETIN) [Concomitant]
  4. POTASSIUM (POTASSIUM) [Concomitant]
  5. DILTIAZEM [Concomitant]
  6. LASIX [Concomitant]
  7. NEURONTIN [Concomitant]
  8. PROTONIX [Concomitant]
  9. ZOSYN [Concomitant]
  10. LOVENOX [Concomitant]
  11. SLIDING SCALE INSULIN (INSULIN) [Concomitant]

REACTIONS (20)
  - ASTHENIA [None]
  - ATRIAL FIBRILLATION [None]
  - CHOLECYSTITIS [None]
  - CHOLECYSTITIS ACUTE [None]
  - CONFUSIONAL STATE [None]
  - DEEP VEIN THROMBOSIS [None]
  - FATIGUE [None]
  - FEELING ABNORMAL [None]
  - HAEMATOCRIT DECREASED [None]
  - HAEMOGLOBIN DECREASED [None]
  - HERPES SIMPLEX [None]
  - HYPOTENSION [None]
  - MALIGNANT NEOPLASM PROGRESSION [None]
  - MULTIPLE MYELOMA [None]
  - PNEUMONIA [None]
  - PROTHROMBIN TIME PROLONGED [None]
  - PULMONARY EMBOLISM [None]
  - RESPIRATORY DISTRESS [None]
  - THERAPY NON-RESPONDER [None]
  - UPPER GASTROINTESTINAL HAEMORRHAGE [None]
